FAERS Safety Report 5304472-X (Version None)
Quarter: 2007Q2

REPORT INFORMATION
  Report Type: 
  Country: None (occurrence: None)
  Receive Date: 20070419
  Receipt Date: 20070419
  Transmission Date: 20071010
  Serious: Yes (Hospitalization)
  Sender: FDA-Public Use
  Company Number: None

PATIENT
  Age: 62 Year
  Sex: Male

DRUGS (5)
  1. PROLEUKIN [Suspect]
     Indication: MALIGNANT MELANOMA
     Dosage: 720,000 IU IV
     Route: 042
     Dates: start: 20070306, end: 20070312
  2. PROLEUKIN [Suspect]
     Indication: MALIGNANT MELANOMA
     Dosage: 720,000 IU IV
     Route: 042
     Dates: start: 20070326, end: 20070329
  3. ACIPHEX [Concomitant]
  4. AMBIEN [Concomitant]
  5. OXYCODONE HCL [Suspect]

REACTIONS (6)
  - BENIGN PROSTATIC HYPERPLASIA [None]
  - DEHYDRATION [None]
  - DIARRHOEA [None]
  - DISEASE PROGRESSION [None]
  - DRUG WITHDRAWAL SYNDROME [None]
  - URINE OUTPUT DECREASED [None]
